FAERS Safety Report 5866679-2 (Version None)
Quarter: 2008Q3

REPORT INFORMATION
  Report Type: 
  Country: None (occurrence: None)
  Receive Date: 20080829
  Receipt Date: 20080829
  Transmission Date: 20090109
  Serious: Yes (Life-Threatening)
  Sender: FDA-Public Use
  Company Number: None

PATIENT
  Age: 76 Year
  Sex: Female
  Weight: 72 kg

DRUGS (1)
  1. THROMBIN LOCAL SOLUTION [Suspect]
     Indication: WOUND CLOSURE
     Dosage: TOP
     Route: 061
     Dates: start: 20080401, end: 20080401

REACTIONS (5)
  - ANTI FACTOR V ANTIBODY POSITIVE [None]
  - COAGULOPATHY [None]
  - HAEMORRHAGE [None]
  - INTRA-ABDOMINAL HAEMATOMA [None]
  - SKIN GRAFT [None]
